FAERS Safety Report 6389076-2 (Version None)
Quarter: 2009Q4

REPORT INFORMATION
  Report Type: 
  Country: None (occurrence: None)
  Receive Date: 20091006
  Receipt Date: 20090921
  Transmission Date: 20100525
  Serious: Yes (Other)
  Sender: FDA-Public Use
  Company Number: PHHY2009BR19687

PATIENT
  Sex: Female
  Weight: 70 kg

DRUGS (2)
  1. FORASEQ [Suspect]
     Indication: BRONCHITIS
     Dosage: 12/400 MCG, 2 TIMES/DAY
     Dates: start: 20090401
  2. FLUTICASONE [Concomitant]
     Indication: BRONCHITIS
     Dosage: 2 PUFFS IN EACH NOSTRIL/DAY
     Dates: start: 20090401

REACTIONS (3)
  - CAESAREAN SECTION [None]
  - DRUG EXPOSURE DURING PREGNANCY [None]
  - NORMAL NEWBORN [None]
